FAERS Safety Report 7976039-6 (Version None)
Quarter: 2011Q4

REPORT INFORMATION
  Report Type: 
  Country: None (occurrence: None)
  Receive Date: 20111213
  Receipt Date: 20111010
  Transmission Date: 20120403
  Serious: No
  Sender: FDA-Public Use
  Company Number: US-AMGEN-USASP2011052348

PATIENT
  Age: 72 Year
  Sex: Female

DRUGS (1)
  1. ENBREL [Suspect]
     Indication: RHEUMATOID ARTHRITIS
     Dosage: 25 MG EVERY ONE TO TWO WEEK
     Dates: start: 19980101, end: 20110801

REACTIONS (3)
  - JOINT LOCK [None]
  - RHEUMATOID ARTHRITIS [None]
  - MOBILITY DECREASED [None]
